FAERS Safety Report 13904972 (Version 3)
Quarter: 2018Q1

REPORT INFORMATION
  Report Type: Report from Study
  Country: AU (occurrence: AU)
  Receive Date: 20170825
  Receipt Date: 20180321
  Transmission Date: 20180508
  Serious: Yes (Hospitalization)
  Sender: FDA-Public Use
  Company Number: AU-BIOGEN-2017BI00379288

PATIENT
  Age: 61 Year
  Sex: Male

DRUGS (3)
  1. ZINBRYTA [Suspect]
     Active Substance: DACLIZUMAB
     Indication: RELAPSING-REMITTING MULTIPLE SCLEROSIS
     Route: 058
     Dates: start: 20170224, end: 20180227
  2. CARBIMOZOLE [Concomitant]
     Indication: HYPERTHYROIDISM
     Route: 065
     Dates: start: 20170225
  3. ZINBRYTA [Suspect]
     Active Substance: DACLIZUMAB
     Route: 058
     Dates: start: 20170225

REACTIONS (8)
  - Skin warm [Recovered/Resolved]
  - Erectile dysfunction [Recovered/Resolved]
  - Pruritus [Recovered/Resolved]
  - Thyroidectomy [Unknown]
  - Poor quality sleep [Recovered/Resolved]
  - Rash [Recovered/Resolved]
  - Erythema [Recovered/Resolved]
  - Arthritis infective [Not Recovered/Not Resolved]

NARRATIVE: CASE EVENT DATE: 20170224
